FAERS Safety Report 17018470 (Version 6)
Quarter: 2023Q2

REPORT INFORMATION
  Report Type: Report from Study
  Country: CO (occurrence: CO)
  Receive Date: 20191111
  Receipt Date: 20230430
  Transmission Date: 20230721
  Serious: Yes (Hospitalization, Other)
  Sender: FDA-Public Use
  Company Number: NVSC2019CO015989

PATIENT
  Age: 67 Year
  Sex: Female
  Weight: 61 kg

DRUGS (7)
  1. TASIGNA [Suspect]
     Active Substance: NILOTINIB
     Indication: Chronic myeloid leukaemia
     Dosage: 300 MG, BID (EVERY 12 HOURS)
     Route: 048
     Dates: start: 20191017
  2. TASIGNA [Suspect]
     Active Substance: NILOTINIB
     Dosage: 400 MG, Q12H
     Route: 048
  3. TASIGNA [Suspect]
     Active Substance: NILOTINIB
     Dosage: 800 MG, QD
     Route: 048
  4. TASIGNA [Suspect]
     Active Substance: NILOTINIB
     Dosage: UNK, QD (150 MG/ 600 MG)
     Route: 065
  5. LOSARTAN [Suspect]
     Active Substance: LOSARTAN
     Indication: Hypertension
     Dosage: 50 MG, BID
     Route: 048
  6. AMLODIPINE [Suspect]
     Active Substance: AMLODIPINE BESYLATE
     Indication: Hypertension
     Dosage: 5 MG, QD
     Route: 048
  7. ASPIRIN [Concomitant]
     Active Substance: ASPIRIN
     Indication: Hypertension
     Dosage: 100 MG, QD
     Route: 048

REACTIONS (10)
  - Urinary tract infection [Unknown]
  - Rash [Not Recovered/Not Resolved]
  - Erythema [Unknown]
  - Pruritus [Unknown]
  - Acne [Unknown]
  - Oedema peripheral [Unknown]
  - Dyspepsia [Unknown]
  - Blood cholesterol increased [Unknown]
  - Influenza [Unknown]
  - Inappropriate schedule of product administration [Unknown]

NARRATIVE: CASE EVENT DATE: 20191020
